FAERS Safety Report 6899457-6 (Version None)
Quarter: 2010Q3

REPORT INFORMATION
  Report Type: 
  Country: None (occurrence: None)
  Receive Date: 20100803
  Receipt Date: 20100729
  Transmission Date: 20110219
  Serious: Yes (Other)
  Sender: FDA-Public Use
  Company Number: JP-SHIRE-SPV1-2010-00132

PATIENT
  Sex: Male
  Weight: 28 kg

DRUGS (7)
  1. IDURSULFASE [Suspect]
     Indication: MUCOPOLYSACCHARIDOSIS II
     Dosage: 13.5 MG, UNKNOWN
     Route: 041
     Dates: start: 20081126, end: 20091224
  2. LORATADINE [Concomitant]
     Indication: PREMEDICATION
     Dosage: 10 MG, 1X/DAY:QD
     Dates: start: 20090827, end: 20091224
  3. HYDROXYZINE PAMOATE [Concomitant]
     Indication: PREMEDICATION
     Dosage: 25 MG, ONE DOSE
     Dates: start: 20091210, end: 20091210
  4. METHYLPREDNISOLONE SODIUM SUCCINATE [Concomitant]
     Indication: PREMEDICATION
     Dosage: 20 MG, ONE DOSE
     Dates: start: 20091210, end: 20091210
  5. METHYLPREDNISOLONE SODIUM SUCCINATE [Concomitant]
     Dosage: 30 MG, ONE DOSE
     Dates: start: 20091217, end: 20091217
  6. METHYLPREDNISOLONE SODIUM SUCCINATE [Concomitant]
     Dosage: 30 MG, ONE DOSE
     Dates: start: 20091224, end: 20091224
  7. HYDROCORTISONE SODIUM SUCCINATE [Concomitant]
     Indication: PREMEDICATION
     Dosage: 300 MG, ONE DOSE
     Dates: start: 20091224, end: 20091224

REACTIONS (4)
  - EYELID OEDEMA [None]
  - INFUSION RELATED REACTION [None]
  - RESPIRATORY DISORDER [None]
  - URTICARIA [None]
